FAERS Safety Report 8076113-2 (Version None)
Quarter: 2012Q1

REPORT INFORMATION
  Report Type: 
  Country: None (occurrence: None)
  Receive Date: 20120127
  Receipt Date: 20110920
  Transmission Date: 20120608
  Serious: No
  Sender: FDA-Public Use
  Company Number: US-GLAXOSMITHKLINE-A0945309A

PATIENT
  Age: 51 Year
  Sex: Male
  Weight: 84.1 kg

DRUGS (8)
  1. LIPITOR [Concomitant]
     Dosage: 1TAB PER DAY
  2. REGULAR INSULIN [Concomitant]
     Route: 058
  3. LANTUS [Concomitant]
     Route: 058
  4. BUPROPION HYDROCHLORIDE [Suspect]
     Indication: TOBACCO USER
     Dosage: 150MG PER DAY
     Route: 048
     Dates: start: 20101201
  5. LISINOPRIL [Concomitant]
     Dosage: 5MG PER DAY
     Route: 048
  6. M.V.I. [Concomitant]
     Dosage: 25MG TWICE PER DAY
     Route: 048
  7. ASPIRIN [Concomitant]
     Dosage: 81MG PER DAY
     Route: 048
  8. LOPRESSOR [Concomitant]
     Dosage: 20MG PER DAY
     Route: 048

REACTIONS (1)
  - AMPHETAMINES POSITIVE [None]
